FAERS Safety Report 10037824 (Version 3)
Quarter: 2015Q1

REPORT INFORMATION
  Report Type: Report from Study
  Country: SG (occurrence: TH)
  Receive Date: 20140326
  Receipt Date: 20150210
  Transmission Date: 20150720
  Serious: Yes (Disabling)
  Sender: FDA-Public Use
  Company Number: SG-SA-2014SA036385

PATIENT
  Age: 34 Year
  Sex: Male
  Weight: 114 kg

DRUGS (1)
  1. THYMOGLOBULIN [Suspect]
     Active Substance: LAPINE T-LYMPHOCYTE IMMUNE GLOBULIN
     Indication: APLASTIC ANAEMIA
     Route: 065
     Dates: start: 20090518, end: 20090522

REACTIONS (1)
  - Macular scar [Unknown]

NARRATIVE: CASE EVENT DATE: 20090821
